FAERS Safety Report 8464997-5 (Version None)
Quarter: 2012Q2

REPORT INFORMATION
  Report Type: 
  Country: None (occurrence: None)
  Receive Date: 20120626
  Receipt Date: 20120618
  Transmission Date: 20120825
  Serious: Yes (Hospitalization)
  Sender: FDA-Public Use
  Company Number: IT-B.I. PHARMACEUTICALS,INC./RIDGEFIELD-2012-IT-00160IT

PATIENT
  Sex: Female

DRUGS (7)
  1. FOLINA [Concomitant]
     Route: 048
  2. ASPIRIN [Concomitant]
     Indication: MYOCARDIAL INFARCTION
     Route: 048
  3. LORAZEPAM [Concomitant]
  4. BISOPROLOL FUMARATE [Suspect]
     Indication: HYPERTENSION
     Dosage: 1.25 MG
     Route: 048
     Dates: start: 20120101
  5. NORVASC [Suspect]
     Indication: HYPERTENSION
     Dosage: 5 MG
     Route: 048
     Dates: start: 20090101
  6. RAMIPRIL [Suspect]
     Indication: HYPERTENSION
     Dosage: 5 MG
     Route: 048
     Dates: start: 20110101
  7. CATAPRES-TTS-1 [Suspect]
     Indication: HYPERTENSION
     Dosage: 0.7143 MG
     Route: 062
     Dates: start: 20120101, end: 20120201

REACTIONS (3)
  - DROP ATTACKS [None]
  - ORTHOSTATIC HYPOTENSION [None]
  - SUBDURAL HAEMATOMA [None]
